FAERS Safety Report 7914049-5 (Version None)
Quarter: 2011Q4

REPORT INFORMATION
  Report Type: 
  Country: None (occurrence: None)
  Receive Date: 20111115
  Receipt Date: 20111108
  Transmission Date: 20120403
  Serious: Yes (Life-Threatening, Hospitalization)
  Sender: FDA-Public Use
  Company Number: US-PFIZER INC-2011253760

PATIENT
  Sex: Male
  Weight: 106.58 kg

DRUGS (18)
  1. QUESTRAN [Concomitant]
     Dosage: UNK
     Dates: start: 20111001
  2. BLINDED THERAPY [Suspect]
     Indication: COLORECTAL CANCER METASTATIC
     Dosage: EVERY 14 DAYS
     Route: 042
     Dates: start: 20110928, end: 20110928
  3. HYDROCODONE [Concomitant]
     Dosage: UNK
     Dates: start: 20110819
  4. MEGACE [Concomitant]
     Dosage: UNK
     Dates: start: 20111001
  5. BICITRA [Concomitant]
     Dosage: UNK
     Dates: start: 20111001
  6. CULTURELLE [Concomitant]
     Dosage: UNK
     Dates: start: 20111001
  7. ZOFRAN [Concomitant]
     Dosage: UNK
     Dates: start: 20110916
  8. LEUCOVORIN CALCIUM [Suspect]
     Indication: COLORECTAL CANCER METASTATIC
     Dosage: 400 MG/M2, DAY 1 EVERY 14 DAYS
     Route: 042
     Dates: start: 20110928, end: 20110928
  9. DIFLUCAN [Concomitant]
     Dosage: UNK
     Dates: start: 20111102
  10. FLUOROURACIL [Suspect]
     Dosage: 2400 MG/M2, ON DAY 1 AND 2 EVERY 14 DAYS
     Route: 042
     Dates: start: 20110928, end: 20110928
  11. LOMOTIL [Concomitant]
     Dosage: UNK
     Dates: start: 20111003
  12. NYSTATIN [Concomitant]
     Dosage: UNK
     Dates: start: 20111102
  13. ZOLOFT [Concomitant]
     Dosage: UNK
     Dates: start: 20111001
  14. IRINOTECAN HCL [Suspect]
     Indication: COLORECTAL CANCER METASTATIC
     Dosage: 180 MG/M2, DAY 1 EVERY 14 DAYS
     Route: 042
     Dates: start: 20110928, end: 20110928
  15. FLUOROURACIL [Suspect]
     Indication: COLORECTAL CANCER METASTATIC
     Dosage: 400 MG/M2, ON DAY 1 EVERY 14 DAYS
     Route: 042
     Dates: start: 20110928, end: 20110928
  16. FENTANYL [Concomitant]
     Dosage: UNK
     Dates: start: 20110919
  17. PROMETHAZINE [Concomitant]
     Dosage: UNK
     Dates: start: 20111003
  18. OPIUM TINCTURE [Concomitant]
     Dosage: UNK
     Dates: start: 20111001

REACTIONS (4)
  - HYPOVOLAEMIC SHOCK [None]
  - RENAL FAILURE ACUTE [None]
  - SEPSIS [None]
  - PYREXIA [None]
